FAERS Safety Report 9726522 (Version 1)
Quarter: 2013Q4

REPORT INFORMATION
  Report Type: Spontaneous
  Country: DE (occurrence: DE)
  Receive Date: 20131203
  Receipt Date: 20131203
  Transmission Date: 20140711
  Serious: Yes (Other)
  Sender: FDA-Public Use
  Company Number: DE-TEVA-448083GER

PATIENT
  Sex: Male

DRUGS (2)
  1. DIAZEPAM-RATIOPHARM 10 MG/ML TROPFEN [Suspect]
     Dosage: TAPERING OFF, CURRENTLY 5 DROPS (2.5 MG) PER DAY
     Route: 048
  2. DIAZEPAM-RATIOPHARM 10 MG/ML TROPFEN [Suspect]
     Dosage: 75 MILLIGRAM DAILY;
     Route: 048
     Dates: start: 2011

REACTIONS (6)
  - Drug dependence [Not Recovered/Not Resolved]
  - Hypertensive crisis [Recovered/Resolved]
  - Panic attack [Recovered/Resolved]
  - Blood pressure fluctuation [Recovered/Resolved]
  - Gastrooesophageal sphincter insufficiency [Not Recovered/Not Resolved]
  - Dyspepsia [Not Recovered/Not Resolved]
